FAERS Safety Report 7491219-4 (Version None)
Quarter: 2011Q2

REPORT INFORMATION
  Report Type: 
  Country: None (occurrence: None)
  Receive Date: 20110519
  Receipt Date: 20110513
  Transmission Date: 20111010
  Serious: Yes (Life-Threatening, Hospitalization, Other)
  Sender: FDA-Public Use
  Company Number: US-PFIZER INC-2011104461

PATIENT
  Sex: Female

DRUGS (2)
  1. GLUCOTROL XL [Suspect]
     Dosage: UNK
  2. ALLEGRA D 24 HOUR [Interacting]
     Dosage: 1 DOSAGE FORM
     Route: 048
     Dates: start: 20020101, end: 20020101

REACTIONS (2)
  - DRUG INTERACTION [None]
  - HYPOGLYCAEMIA [None]
